FAERS Safety Report 6250774-2 (Version None)
Quarter: 2009Q2

REPORT INFORMATION
  Report Type: 
  Country: None (occurrence: None)
  Receive Date: 20090630
  Receipt Date: 20081022
  Transmission Date: 20091009
  Serious: No
  Sender: FDA-Public Use
  Company Number: US-ABBOTT-08P-163-0483315-00

PATIENT
  Sex: Female
  Weight: 78.996 kg

DRUGS (12)
  1. ZEMPLAR [Suspect]
     Indication: HYPERPARATHYROIDISM
     Route: 048
     Dates: start: 20070729, end: 20080107
  2. ZEMPLAR [Suspect]
     Indication: RENAL OSTEODYSTROPHY
     Dosage: 2 MCG DAILY
     Route: 048
     Dates: start: 20080107, end: 20080506
  3. ZEMPLAR [Suspect]
     Route: 048
     Dates: start: 20080915, end: 20081022
  4. ZEMPLAR [Suspect]
  5. ERGOCALCIFEROL [Concomitant]
     Indication: DRUG USE FOR UNKNOWN INDICATION
     Dosage: 50,000 UNITS PER MONTH
     Dates: start: 20080601
  6. ACETYLSALICYLIC ACID [Concomitant]
     Indication: DRUG USE FOR UNKNOWN INDICATION
  7. METOPROLOL SUCCINATE [Concomitant]
     Indication: DRUG USE FOR UNKNOWN INDICATION
  8. FUROSEMIDE INTENSOL [Concomitant]
     Indication: DRUG USE FOR UNKNOWN INDICATION
  9. IRBESARTAN [Concomitant]
     Indication: DRUG USE FOR UNKNOWN INDICATION
  10. BUPROPION [Concomitant]
     Indication: DRUG USE FOR UNKNOWN INDICATION
  11. ATORVASTATIN CALCIUM [Concomitant]
     Indication: DRUG USE FOR UNKNOWN INDICATION
  12. ADDITIONAL VITAMIN D [Concomitant]
     Indication: DRUG USE FOR UNKNOWN INDICATION
     Dosage: 50/000 UNITS MONTHLY
     Dates: start: 20080601

REACTIONS (1)
  - HYPERCALCAEMIA [None]
